FAERS Safety Report 22029516 (Version 1)
Quarter: 2023Q1

REPORT INFORMATION
  Report Type: Spontaneous
  Country: US (occurrence: None)
  Receive Date: 20230221
  Receipt Date: 20230221
  Transmission Date: 20230418
  Serious: Yes (unspecified)
  Sender: FDA-Public Use
  Company Number: None

PATIENT
  Age: 20 Month
  Sex: Female
  Weight: 13.5 kg

DRUGS (4)
  1. TIROSINT-SOL [Suspect]
     Active Substance: LEVOTHYROXINE SODIUM
     Indication: Congenital hypothyroidism
     Dosage: OTHER STRENGTH : MCG/ML;?OTHER QUANTITY : 30 UNITS (AMPULES);?
     Route: 048
     Dates: start: 20220829, end: 20230111
  2. TIROSINT-SOL [Suspect]
     Active Substance: LEVOTHYROXINE SODIUM
  3. CHILDREN^S TYLENOL [Concomitant]
  4. LEVOTHYROXINE [Concomitant]
     Active Substance: LEVOTHYROXINE

REACTIONS (5)
  - Product quality issue [None]
  - Drug level below therapeutic [None]
  - Blood thyroid stimulating hormone increased [None]
  - Thyroxine increased [None]
  - Growth retardation [None]

NARRATIVE: CASE EVENT DATE: 20230111
